FAERS Safety Report 26191128 (Version 1)
Quarter: 2025Q4

REPORT INFORMATION
  Report Type: Spontaneous
  Country: US (occurrence: None)
  Receive Date: 20251222
  Receipt Date: 20251222
  Transmission Date: 20260118
  Serious: Yes (Death)
  Sender: FDA-CTU
  Company Number: None

PATIENT
  Sex: Male

DRUGS (13)
  1. POMALYST [Suspect]
     Active Substance: POMALIDOMIDE
     Indication: Plasma cell myeloma
     Dosage: OTHER QUANTITY : TK ONE PO ONCE D ON DAYS 1 THROUGH 21 Q 28;?FREQUENCY : DAILY;
     Route: 048
     Dates: start: 20250725
  2. VOLTAREN 1% EL 199GM (OTC) [Concomitant]
  3. DARZALEX FASPRO SOLUTION 15ML [Concomitant]
  4. DEXAMETHASONE 4MG TABLETS [Concomitant]
  5. ELIQUIS [Concomitant]
     Active Substance: APIXABAN
  6. CALCIUM 600MG W/D TABLETS G/S [Concomitant]
  7. CETIRIZINE [Concomitant]
     Active Substance: CETIRIZINE HYDROCHLORIDE
  8. ACETAMINOPHEN 500MG TABLETS [Concomitant]
  9. ACETAMINOPHEN 500MG TABLETS [Concomitant]
  10. VITAMIN D 1,000IU SOFTGELS [Concomitant]
  11. DIPHENHYDRAMINE 25MG CAPSULES [Concomitant]
  12. FERROUS SULFATE 140MG TABLETS [Concomitant]
  13. FLONASE S0MCG NAS SPRAY RX (120SPR) [Concomitant]

REACTIONS (1)
  - Death [None]
